FAERS Safety Report 5930655-1 (Version None)
Quarter: 2008Q4

REPORT INFORMATION
  Report Type: 
  Country: None (occurrence: None)
  Receive Date: 20081024
  Receipt Date: 20081024
  Transmission Date: 20090506
  Serious: Yes (Death)
  Sender: FDA-Public Use
  Company Number: None

PATIENT
  Age: 53 Year
  Sex: Female
  Weight: 54.4316 kg

DRUGS (2)
  1. METHADONE HCL [Suspect]
     Indication: FIBROMYALGIA
     Dosage: 40MG 4 TIMES A DAY PO
     Route: 048
     Dates: start: 20030724, end: 20030725
  2. METHADONE HCL [Suspect]
     Indication: PAIN
     Dosage: 40MG 4 TIMES A DAY PO
     Route: 048
     Dates: start: 20030724, end: 20030725

REACTIONS (3)
  - DRUG PRESCRIBING ERROR [None]
  - INCORRECT DOSE ADMINISTERED [None]
  - MEDICATION ERROR [None]
